FAERS Safety Report 5720831-5 (Version None)
Quarter: 2008Q2

REPORT INFORMATION
  Report Type: 
  Country: None (occurrence: None)
  Receive Date: 20080429
  Receipt Date: 20080422
  Transmission Date: 20081010
  Serious: Yes (Hospitalization)
  Sender: FDA-Public Use
  Company Number: PHNU2008DE01625

PATIENT
  Age: 61 Year
  Sex: Male
  Weight: 80 kg

DRUGS (3)
  1. DIOVAN [Suspect]
     Indication: HYPERTENSION
     Dosage: 80 MG/DAY
     Route: 048
  2. SIMVASTATIN SANDOZ (NGX) [Suspect]
     Dosage: 30 MG/DAY
     Route: 048
     Dates: end: 20071201
  3. SIMVASTATIN SANDOZ (NGX) [Suspect]
     Dosage: 60 MG/DAY
     Route: 048
     Dates: start: 20071201

REACTIONS (2)
  - ASPARTATE AMINOTRANSFERASE INCREASED [None]
  - BLOOD CREATINE PHOSPHOKINASE INCREASED [None]
